FAERS Safety Report 7009843 (Version 3)
Quarter: 2013Q3

REPORT INFORMATION
  Report Type: Report from Study
  Country: JP (occurrence: JP)
  Receive Date: 20090603
  Receipt Date: 20130701
  Transmission Date: 20140515
  Serious: Yes (Hospitalization, Other)
  Sender: FDA-Public Use
  Company Number: JP-ABBOTT-09P-087-0575369-00

PATIENT
  Age: 62 Year
  Sex: Male
  Weight: 52 kg

DRUGS (8)
  1. HUMIRA 40 MG/ 0.8 ML PRE-FILLED SYRINGE [Suspect]
     Indication: RHEUMATOID ARTHRITIS
     Route: 058
     Dates: start: 20081209, end: 20090403
  2. HUMIRA 40 MG/ 0.8 ML PRE-FILLED SYRINGE [Suspect]
     Route: 058
     Dates: start: 20090508
  3. METHOTREXATE [Concomitant]
     Indication: RHEUMATOID ARTHRITIS
  4. PREDNISOLONE [Concomitant]
     Indication: RHEUMATOID ARTHRITIS
  5. LOXOPROFEN SODIUM [Concomitant]
     Indication: GASTRITIS PROPHYLAXIS
  6. REBAMIPIDE [Concomitant]
     Indication: RHEUMATOID ARTHRITIS
  7. SODIUM RISEDRONATE HYDRATE [Concomitant]
     Indication: RHEUMATOID ARTHRITIS
  8. LANSOPRAZOLE [Concomitant]
     Indication: GASTRITIS PROPHYLAXIS

REACTIONS (1)
  - Arthropathy [Recovered/Resolved]
